FAERS Safety Report 20745586 (Version 3)
Quarter: 2022Q3

REPORT INFORMATION
  Report Type: Report from Study
  Country: US (occurrence: None)
  Receive Date: 20220425
  Receipt Date: 20220822
  Transmission Date: 20221026
  Serious: Yes (Hospitalization)
  Sender: FDA-Public Use
  Company Number: US-Eisai Medical Research-EC-2022-107964

PATIENT
  Age: 60 Year
  Sex: Male

DRUGS (2)
  1. LENVIMA [Suspect]
     Active Substance: LENVATINIB
     Indication: Renal cancer
     Route: 048
     Dates: start: 20211227, end: 20220406
  2. EVEROLIMUS [Concomitant]
     Active Substance: EVEROLIMUS
     Dates: end: 20220406

REACTIONS (8)
  - Diarrhoea [Recovering/Resolving]
  - Vomiting [Unknown]
  - Dehydration [Recovering/Resolving]
  - Hiccups [Recovering/Resolving]
  - Blood sodium decreased [Recovering/Resolving]
  - Renal failure [Recovering/Resolving]
  - Viral infection [Unknown]
  - Incorrect dose administered [Recovering/Resolving]

NARRATIVE: CASE EVENT DATE: 20211227
